FAERS Safety Report 16146822 (Version 1)
Quarter: 2019Q2

REPORT INFORMATION
  Report Type: Spontaneous
  Country: US (occurrence: US)
  Receive Date: 20190402
  Receipt Date: 20190402
  Transmission Date: 20190711
  Serious: No
  Sender: FDA-Public Use
  Company Number: US-SHIRE-US201910597

PATIENT
  Sex: Female

DRUGS (1)
  1. AGRYLIN [Suspect]
     Active Substance: ANAGRELIDE HYDROCHLORIDE
     Indication: PLATELET COUNT INCREASED
     Dosage: UNK UNK, 3X/DAY:TID
     Route: 065

REACTIONS (7)
  - Expired product administered [Unknown]
  - Heart rate increased [Unknown]
  - Skin disorder [Unknown]
  - Off label use [Unknown]
  - Platelet count increased [Unknown]
  - Adverse drug reaction [Unknown]
  - Malaise [Unknown]
